FAERS Safety Report 14062282 (Version 3)
Quarter: 2019Q3

REPORT INFORMATION
  Report Type: Spontaneous
  Country: US (occurrence: US)
  Receive Date: 20171009
  Receipt Date: 20190819
  Transmission Date: 20191004
  Serious: No
  Sender: FDA-Public Use
  Company Number: US-PFIZER INC-2017430501

PATIENT
  Age: 62 Year
  Sex: Female
  Weight: 85 kg

DRUGS (4)
  1. ZOMETA [Concomitant]
     Active Substance: ZOLEDRONIC ACID
     Indication: BREAST CANCER FEMALE
     Dosage: 4 MG, MONTHLY
     Route: 042
     Dates: start: 2017
  2. IBRANCE [Suspect]
     Active Substance: PALBOCICLIB
     Dosage: 100 MG, UNK
  3. FASLODEX [Concomitant]
     Active Substance: FULVESTRANT
     Indication: BREAST CANCER FEMALE
     Dosage: 500 MG, MONTHLY
     Route: 030
     Dates: start: 2017
  4. IBRANCE [Suspect]
     Active Substance: PALBOCICLIB
     Indication: BREAST CANCER FEMALE
     Dosage: 125 MG, CYCLIC  (ONE CAPSULE DAILY FOR 21 DAYS IN A 28 DAY CYCLE)
     Route: 048
     Dates: start: 2017, end: 20171003

REACTIONS (6)
  - Diarrhoea [Unknown]
  - Hot flush [Unknown]
  - Fatigue [Unknown]
  - Nausea [Unknown]
  - Malaise [Unknown]
  - Memory impairment [Unknown]
